FAERS Safety Report 20538322 (Version 1)
Quarter: 2022Q1

REPORT INFORMATION
  Report Type: Spontaneous
  Country: CN (occurrence: CN)
  Receive Date: 20220302
  Receipt Date: 20220302
  Transmission Date: 20220423
  Serious: Yes (Hospitalization)
  Sender: FDA-Public Use
  Company Number: CN-BAYER-2021-201333

PATIENT
  Age: 56 Year
  Sex: Female
  Weight: 60 kg

DRUGS (6)
  1. RIVAROXABAN [Suspect]
     Active Substance: RIVAROXABAN
     Indication: Deep vein thrombosis
     Dosage: 10 MG, QD
     Route: 048
     Dates: start: 20200916, end: 20200921
  2. SODIUM ESCINATE [Suspect]
     Active Substance: SODIUM ESCINATE
     Indication: Deep vein thrombosis
     Dosage: 10 MG, QD
     Route: 041
     Dates: start: 20200913, end: 20200921
  3. HERBALS\PANAX NOTOGINSENG ROOT EXTRACT [Suspect]
     Active Substance: HERBALS\PANAX NOTOGINSENG ROOT EXTRACT
     Indication: Deep vein thrombosis
     Dosage: 400 MG, QD
     Route: 041
     Dates: start: 20200913, end: 20200921
  4. GANCICLOVIR [Concomitant]
     Active Substance: GANCICLOVIR
     Dosage: 0.25 G, BID
     Route: 041
     Dates: start: 20200915, end: 20200921
  5. SODIUM CHLORIDE [Concomitant]
     Active Substance: SODIUM CHLORIDE
     Dosage: 250 ML, QD
     Route: 041
     Dates: start: 20200913, end: 20200921
  6. DEXTROSE [Concomitant]
     Active Substance: DEXTROSE
     Dosage: 250 MG, QD
     Route: 041
     Dates: start: 20200913, end: 20200921

REACTIONS (5)
  - Dermatitis allergic [Recovering/Resolving]
  - Prescribed underdose [Unknown]
  - Underdose [Unknown]
  - Inappropriate schedule of product administration [Unknown]
  - Product prescribing issue [Unknown]

NARRATIVE: CASE EVENT DATE: 20200916
